FAERS Safety Report 6319259-9 (Version None)
Quarter: 2009Q3

REPORT INFORMATION
  Report Type: 
  Country: None (occurrence: None)
  Receive Date: 20090821
  Receipt Date: 20080818
  Transmission Date: 20100115
  Serious: No
  Sender: FDA-Public Use
  Company Number: US-ABBOTT-08P-163-0471101-00

PATIENT
  Sex: Male
  Weight: 99.88 kg

DRUGS (8)
  1. NIASPAN [Suspect]
     Indication: BLOOD CHOLESTEROL
     Route: 048
     Dates: start: 20080814, end: 20080814
  2. NIASPAN [Suspect]
     Route: 048
     Dates: start: 20080815, end: 20080815
  3. NIASPAN [Suspect]
     Route: 048
     Dates: start: 20080816
  4. MORNIFLUMATE [Concomitant]
     Indication: PROSTATIC DISORDER
     Route: 048
     Dates: start: 19980101
  5. RAMIPRIL [Concomitant]
     Indication: HYPERTENSION
     Route: 048
     Dates: start: 20070101
  6. AMLODIPINE MALEATE [Concomitant]
     Indication: HYPERTENSION
     Route: 048
     Dates: start: 20070101
  7. CARVEDILOL [Concomitant]
     Indication: BLOOD PRESSURE
     Route: 048
     Dates: start: 20070101
  8. GABAPENTIN [Concomitant]
     Indication: PAIN IN EXTREMITY
     Route: 048
     Dates: start: 20040101

REACTIONS (4)
  - FEELING HOT [None]
  - FLUSHING [None]
  - OVERDOSE [None]
  - PARAESTHESIA [None]
